FAERS Safety Report 5395413-8 (Version None)
Quarter: 2007Q3

REPORT INFORMATION
  Report Type: 
  Country: None (occurrence: None)
  Receive Date: 20070724
  Receipt Date: 20070713
  Transmission Date: 20080115
  Serious: Yes (Hospitalization)
  Sender: FDA-Public Use
  Company Number: HQWYE093117JUL07

PATIENT
  Sex: Male
  Weight: 87.62 kg

DRUGS (8)
  1. TEMSIROLIMUS [Suspect]
     Indication: RENAL CANCER METASTATIC
     Route: 042
     Dates: start: 20070501
  2. FENTANYL TRANSDERMAL SYSTEM [Concomitant]
     Indication: PAIN
     Dosage: 25UG EVERY 72 HOURS
     Route: 062
  3. SALBUTAMOL [Concomitant]
     Indication: CHRONIC OBSTRUCTIVE PULMONARY DISEASE
     Route: 048
  4. SPIRONOLACTONE [Suspect]
     Indication: OEDEMA
     Route: 048
  5. ZOMETA [Concomitant]
     Indication: METASTASIS
     Route: 042
  6. VICODIN [Concomitant]
     Indication: PAIN
     Dosage: 5/500MG AS NEEDED
     Route: 048
  7. DECADRON [Concomitant]
     Indication: METASTASIS
     Route: 048
  8. NORVASC [Concomitant]
     Indication: HYPERTENSION
     Route: 048

REACTIONS (2)
  - DEEP VEIN THROMBOSIS [None]
  - HYPERKALAEMIA [None]
